FAERS Safety Report 11424018 (Version 3)
Quarter: 2015Q4

REPORT INFORMATION
  Report Type: Spontaneous
  Country: US (occurrence: US)
  Receive Date: 20150827
  Receipt Date: 20151020
  Transmission Date: 20160304
  Serious: No
  Sender: FDA-Public Use
  Company Number: US-PFIZER INC-2015281170

PATIENT
  Age: 42 Year
  Sex: Male
  Weight: 169 kg

DRUGS (2)
  1. LYRICA [Suspect]
     Active Substance: PREGABALIN
     Indication: BREAKTHROUGH PAIN
     Dosage: 75 MG, 2X/DAY
     Dates: start: 2015
  2. LYRICA [Suspect]
     Active Substance: PREGABALIN
     Dosage: 150 MG, 2X/DAY

REACTIONS (5)
  - Diarrhoea [Unknown]
  - Gastric disorder [Unknown]
  - Constipation [Unknown]
  - Faeces soft [Unknown]
  - Drug ineffective [Unknown]

NARRATIVE: CASE EVENT DATE: 2015
